FAERS Safety Report 15075262 (Version 1)
Quarter: 2018Q2

REPORT INFORMATION
  Report Type: Spontaneous
  Country: US (occurrence: US)
  Receive Date: 20180627
  Receipt Date: 20180627
  Transmission Date: 20180711
  Serious: Yes (Other)
  Sender: FDA-Public Use
  Company Number: US-SAOL THERAPEUTICS-2017SAO01559

PATIENT
  Age: 59 Year
  Sex: Male

DRUGS (6)
  1. BACLOFEN. [Suspect]
     Active Substance: BACLOFEN
     Indication: MUSCLE SPASTICITY
     Dosage: 335 ?G, \DAY
     Route: 037
  2. MORPHINE [Suspect]
     Active Substance: MORPHINE
     Route: 037
  3. BACLOFEN. [Suspect]
     Active Substance: BACLOFEN
     Indication: MUSCLE SPASTICITY
     Dosage: 130.01 ?G, \DAY
     Route: 037
  4. MORPHINE [Suspect]
     Active Substance: MORPHINE
     Dosage: 1.3001 MG, \DAY
     Route: 037
  5. BACLOFEN. [Concomitant]
     Active Substance: BACLOFEN
     Indication: MUSCLE SPASTICITY
     Dosage: 40-50 MG/DAY
     Route: 048
  6. BACLOFEN. [Suspect]
     Active Substance: BACLOFEN
     Dosage: 400 ?G, \DAY

REACTIONS (8)
  - Muscle spasms [Not Recovered/Not Resolved]
  - Drug withdrawal syndrome [Not Recovered/Not Resolved]
  - Gait inability [Recovered/Resolved]
  - Therapy non-responder [Not Recovered/Not Resolved]
  - Neuropathy peripheral [None]
  - Pain [Not Recovered/Not Resolved]
  - Complication associated with device [Not Recovered/Not Resolved]
  - Muscle spasticity [Not Recovered/Not Resolved]

NARRATIVE: CASE EVENT DATE: 2017
